FAERS Safety Report 9779160 (Version 1)
Quarter: 2013Q4

REPORT INFORMATION
  Report Type: Spontaneous
  Country: US (occurrence: US)
  Receive Date: 20131223
  Receipt Date: 20131223
  Transmission Date: 20140711
  Serious: No
  Sender: FDA-Public Use
  Company Number: US-ENDO PHARMACEUTICALS INC.-OPCR20130438

PATIENT
  Age: 53 Year
  Sex: Male

DRUGS (2)
  1. OPANA ER 10MG [Suspect]
     Indication: PAIN
     Route: 048
     Dates: start: 20131205
  2. MS CONTIN [Concomitant]
     Indication: PAIN
     Route: 048
     Dates: end: 20131204

REACTIONS (5)
  - Abdominal distension [Recovering/Resolving]
  - Abdominal pain [Recovering/Resolving]
  - Diarrhoea [Unknown]
  - Drug withdrawal syndrome [Recovering/Resolving]
  - Drug ineffective [Not Recovered/Not Resolved]
